FAERS Safety Report 12112374 (Version 2)
Quarter: 2016Q2

REPORT INFORMATION
  Report Type: Spontaneous
  Country: US (occurrence: US)
  Receive Date: 20160225
  Receipt Date: 20160401
  Transmission Date: 20160815
  Serious: Yes (Other)
  Sender: FDA-Public Use
  Company Number: US-HOSPIRA-3185240

PATIENT
  Age: 72 Year
  Sex: Male
  Weight: 120 kg

DRUGS (21)
  1. INVESTIGATIONAL DRUG [Suspect]
     Active Substance: INVESTIGATIONAL PRODUCT
     Indication: OSTEOARTHRITIS
     Route: 048
     Dates: start: 20130221, end: 20150219
  2. OMEGA 3                            /01333901/ [Concomitant]
     Active Substance: FISH OIL\TOCOPHEROL
     Indication: NUTRITIONAL SUPPLEMENTATION
  3. CIPRO [Concomitant]
     Active Substance: CIPROFLOXACIN HYDROCHLORIDE
     Indication: ANTIBIOTIC THERAPY
     Dates: start: 20150314, end: 20150324
  4. VANCOMYCIN HYDROCHLORIDE. [Suspect]
     Active Substance: VANCOMYCIN HYDROCHLORIDE
     Indication: PAROTITIS
     Dates: start: 20150325, end: 20150330
  5. IMIPENEM [Suspect]
     Active Substance: IMIPENEM
     Indication: STAPHYLOCOCCAL INFECTION
     Dates: start: 20150326
  6. VANCOMYCIN HYDROCHLORIDE. [Suspect]
     Active Substance: VANCOMYCIN HYDROCHLORIDE
     Indication: PAROTITIS
     Dates: start: 20150325, end: 20150330
  7. VANCOMYCIN HYDROCHLORIDE. [Suspect]
     Active Substance: VANCOMYCIN HYDROCHLORIDE
     Indication: STAPHYLOCOCCAL BACTERAEMIA
     Dates: start: 20150325, end: 20150330
  8. LASIX [Concomitant]
     Active Substance: FUROSEMIDE
     Indication: HYPERTENSION
     Dates: start: 201502
  9. DAPTOMYCIN. [Suspect]
     Active Substance: DAPTOMYCIN
     Indication: PAROTITIS
     Dates: start: 20150330, end: 20150511
  10. NEXIUM [Suspect]
     Active Substance: ESOMEPRAZOLE MAGNESIUM
     Indication: PROPHYLAXIS
     Route: 048
     Dates: start: 20130221, end: 20150219
  11. CALCIUM [Concomitant]
     Active Substance: CALCIUM
     Indication: NUTRITIONAL SUPPLEMENTATION
     Dates: start: 2000
  12. ASPIRIN                            /00002701/ [Concomitant]
     Active Substance: ASPIRIN
     Indication: CARDIOVASCULAR EVENT PROPHYLAXIS
     Dates: start: 2008
  13. DAPTOMYCIN. [Suspect]
     Active Substance: DAPTOMYCIN
     Indication: STAPHYLOCOCCAL INFECTION
     Dates: start: 20150330, end: 20150511
  14. COZAAR [Concomitant]
     Active Substance: LOSARTAN POTASSIUM
     Indication: HYPERTENSION
     Dates: start: 20150220
  15. NEXIUM [Suspect]
     Active Substance: ESOMEPRAZOLE MAGNESIUM
     Indication: GASTROINTESTINAL DISORDER
     Route: 048
     Dates: start: 20130221, end: 20150219
  16. VITAMIN D                          /00107901/ [Concomitant]
     Active Substance: ERGOCALCIFEROL
     Indication: NUTRITIONAL SUPPLEMENTATION
     Dates: start: 2000
  17. TUMS                               /00193601/ [Concomitant]
     Active Substance: CALCIUM CARBONATE\MAGNESIUM CARBONATE\MAGNESIUM TRISILICATE
     Indication: NUTRITIONAL SUPPLEMENTATION
     Dates: start: 2000
  18. KLONOPIN [Concomitant]
     Active Substance: CLONAZEPAM
     Indication: ANXIETY
     Dates: start: 20150226
  19. DAPTOMYCIN. [Suspect]
     Active Substance: DAPTOMYCIN
     Indication: STAPHYLOCOCCAL BACTERAEMIA
     Dates: start: 20150330, end: 20150511
  20. IMIPENEM [Suspect]
     Active Substance: IMIPENEM
     Indication: STAPHYLOCOCCAL BACTERAEMIA
     Dates: start: 20150326
  21. IMIPENEM [Suspect]
     Active Substance: IMIPENEM
     Indication: PAROTITIS
     Dates: start: 20150326

REACTIONS (2)
  - Decubitus ulcer [Unknown]
  - Thrombocytopenia [Unknown]
